FAERS Safety Report 8381903-2 (Version None)
Quarter: 2012Q2

REPORT INFORMATION
  Report Type: 
  Country: None (occurrence: None)
  Receive Date: 20120524
  Receipt Date: 20120510
  Transmission Date: 20120825
  Serious: Yes (Other)
  Sender: FDA-Public Use
  Company Number: DE-RANBAXY-2012RR-56423

PATIENT
  Age: 50 Year
  Sex: Female

DRUGS (11)
  1. VENLAFAXINE [Interacting]
     Dosage: 150 MG/DAY
     Route: 065
  2. VENLAFAXINE [Interacting]
     Dosage: DOSAGE INCREASED SLOWLY TO 225 MG/DAY
     Route: 065
  3. LITHIUM CARBONATE [Concomitant]
     Indication: PRODUCT USED FOR UNKNOWN INDICATION
     Route: 065
  4. BISOPROLOL FUMARATE [Concomitant]
     Indication: PRODUCT USED FOR UNKNOWN INDICATION
     Route: 065
  5. VENLAFAXINE [Interacting]
     Dosage: 75 MG/DAY
     Route: 065
  6. VENLAFAXINE [Interacting]
     Dosage: 225 MG/DAY
     Route: 065
  7. LEVOTHYROXINE SODIUM [Concomitant]
     Indication: PRODUCT USED FOR UNKNOWN INDICATION
     Route: 065
  8. VENLAFAXINE [Interacting]
     Dosage: 75 MG/DAY
     Route: 065
  9. FLUOXETINE [Suspect]
     Indication: MAJOR DEPRESSION
     Dosage: 60 MG/DAY
     Route: 065
  10. VENLAFAXINE [Interacting]
     Indication: MAJOR DEPRESSION
     Dosage: 37.5 MG/DAY
     Route: 065
  11. VENLAFAXINE [Interacting]
     Dosage: 150 MG/DAY
     Route: 065

REACTIONS (2)
  - DRUG INTERACTION [None]
  - SEROTONIN SYNDROME [None]
